FAERS Safety Report 17780587 (Version 1)
Quarter: 2020Q2

REPORT INFORMATION
  Report Type: Spontaneous
  Country: FR (occurrence: FR)
  Receive Date: 20200514
  Receipt Date: 20200514
  Transmission Date: 20200714
  Serious: Yes (Hospitalization)
  Sender: FDA-Public Use
  Company Number: FR-ACCORD-181642

PATIENT
  Age: 58 Year
  Sex: Male
  Weight: 82 kg

DRUGS (19)
  1. ACTISKENAN [Concomitant]
     Active Substance: MORPHINE SULFATE
     Dosage: 5 MG UP TO 6X / D IF PAIN
     Route: 048
  2. CETUXIMAB. [Suspect]
     Active Substance: CETUXIMAB
     Indication: RECTAL ADENOCARCINOMA
     Route: 042
     Dates: start: 20191029, end: 20200318
  3. ELVORINE [Suspect]
     Active Substance: LEUCOVORIN CALCIUM
     Indication: RECTAL ADENOCARCINOMA
     Route: 042
     Dates: start: 20191029, end: 20200318
  4. PARACETAMOL [Concomitant]
     Active Substance: ACETAMINOPHEN
     Dosage: 1G 1X/6H IF PAIN
     Route: 048
  5. DUPHALAC [Concomitant]
     Active Substance: LACTULOSE
     Dosage: 3X/J DEPENDING ON THE TRANSIT
     Route: 048
  6. SKENAN [Concomitant]
     Active Substance: MORPHINE SULFATE
     Dosage: STRENGTH: 10 MG
     Route: 048
  7. IMOVANE [Concomitant]
     Active Substance: ZOPICLONE
     Dosage: 7.5MG IF INSOMNIA
     Route: 048
  8. SERESTA [Concomitant]
     Active Substance: OXAZEPAM
     Dosage: 10MG 1X/J IF ANXIETY
     Route: 048
  9. FLUOROURACIL. [Suspect]
     Active Substance: FLUOROURACIL
     Indication: RECTAL ADENOCARCINOMA
     Route: 042
     Dates: start: 20191029, end: 20200318
  10. EMLA [Concomitant]
     Active Substance: LIDOCAINE\PRILOCAINE
     Route: 062
  11. KARDEGIC [Concomitant]
     Active Substance: ASPIRIN DL-LYSINE
     Route: 048
  12. BINOCRIT [Concomitant]
     Active Substance: ERYTHROPOIETIN
     Dosage: STRENGTH: 30 000 UI/0,75 ML
     Route: 058
  13. IRINOTECAN [Suspect]
     Active Substance: IRINOTECAN
     Indication: RECTAL ADENOCARCINOMA
     Route: 042
     Dates: start: 20191029, end: 20200318
  14. ZOPHREN [Concomitant]
     Active Substance: ONDANSETRON
     Dosage: STRENGTH: 8 MG, 8 MG IF NAUSEA DESPITE PRIMPERAN
     Route: 048
  15. PERINDOPRIL [Concomitant]
     Active Substance: PERINDOPRIL
     Route: 048
  16. PROPRANOLOL [Concomitant]
     Active Substance: PROPRANOLOL HYDROCHLORIDE
     Route: 048
  17. DIOSMECTITE [Concomitant]
     Active Substance: MONTMORILLONITE
     Dosage: 3X/J IF DIARRHEA
     Route: 048
  18. METOCLOPRAMIDE. [Concomitant]
     Active Substance: METOCLOPRAMIDE
     Dosage: 10MG 3X/J IF NAUSEA
     Route: 048
  19. PANTOPRAZOLE [Concomitant]
     Active Substance: PANTOPRAZOLE
     Route: 048

REACTIONS (1)
  - Osteitis [Not Recovered/Not Resolved]

NARRATIVE: CASE EVENT DATE: 20200323
